FAERS Safety Report 17065124 (Version 1)
Quarter: 2019Q4

REPORT INFORMATION
  Report Type: Spontaneous
  Country: US (occurrence: US)
  Receive Date: 20191122
  Receipt Date: 20191122
  Transmission Date: 20200122
  Serious: Yes (Life-Threatening)
  Sender: FDA-Public Use
  Company Number: None

PATIENT
  Age: 52 Year
  Sex: Male
  Weight: 95 kg

DRUGS (1)
  1. COSYNTROPIN. [Suspect]
     Active Substance: COSYNTROPIN
     Indication: ACTH STIMULATION TEST
     Dosage: ?          OTHER FREQUENCY:ONCE;?
     Route: 042
     Dates: start: 20191107, end: 20191107

REACTIONS (3)
  - Stridor [None]
  - Pharyngeal swelling [None]
  - Infusion related reaction [None]

NARRATIVE: CASE EVENT DATE: 20191107
